FAERS Safety Report 17030920 (Version 1)
Quarter: 2019Q4

REPORT INFORMATION
  Report Type: Spontaneous
  Country: CA (occurrence: CA)
  Receive Date: 20191114
  Receipt Date: 20191114
  Transmission Date: 20200122
  Serious: Yes (Disabling, Other)
  Sender: FDA-Public Use
  Company Number: CA-PFIZER INC-2019490362

PATIENT
  Age: 10 Year
  Sex: Male
  Weight: 29 kg

DRUGS (7)
  1. DOXORUBICIN LIPOSOMAL [Concomitant]
     Active Substance: DOXORUBICIN
     Dosage: UNK
  2. PEG-L-ASPARAGINASE [Concomitant]
     Active Substance: PEGASPARGASE
     Dosage: UNK
  3. MERCAPTOPURINE. [Concomitant]
     Active Substance: MERCAPTOPURINE
     Dosage: UNK
  4. VINCRISTINE SULFATE. [Suspect]
     Active Substance: VINCRISTINE SULFATE
     Indication: ACUTE LYMPHOCYTIC LEUKAEMIA
     Dosage: UNK
     Route: 042
  5. E.COLI [Concomitant]
     Dosage: UNK
  6. CYTARABINE. [Concomitant]
     Active Substance: CYTARABINE
     Dosage: UNK
     Route: 037
  7. METHOTREXATE. [Concomitant]
     Active Substance: METHOTREXATE
     Dosage: UNK

REACTIONS (6)
  - Arthralgia [Unknown]
  - Pain in extremity [Unknown]
  - Neuropathy peripheral [Unknown]
  - Bone pain [Unknown]
  - Gait disturbance [Unknown]
  - Hypoaesthesia [Unknown]
